FAERS Safety Report 8949280 (Version 1)
Quarter: 2012Q4

REPORT INFORMATION
  Report Type: 
  Country: JP (occurrence: JP)
  Receive Date: 20121206
  Receipt Date: 20121206
  Transmission Date: 20130627
  Serious: Yes (Other)
  Sender: FDA-Public Use
  Company Number: JP-TEVA-374076ISR

PATIENT
  Age: 7 None
  Sex: Male

DRUGS (6)
  1. CISPLATIN [Suspect]
     Indication: HEPATIC NEOPLASM MALIGNANT
     Dosage: LFP therapy: 5-10mg for 30 min on d1-5 every w
     Route: 013
  2. CISPLATIN [Suspect]
     Indication: HEPATIC NEOPLASM MALIGNANT
     Dosage: LFP therapy: bi-weekly administration
     Route: 013
  3. FLUOROURACIL [Suspect]
     Indication: HEPATIC NEOPLASM MALIGNANT
     Dosage: LFP therapy: continuous 1250mg for 5d every w
     Route: 013
  4. FLUOROURACIL [Suspect]
     Indication: HEPATIC NEOPLASM MALIGNANT
     Dosage: LFP therapy: bi-weekly administration
     Route: 013
  5. SORAFENIB [Suspect]
     Indication: HEPATIC NEOPLASM MALIGNANT
     Dosage: as monotherapy
     Route: 065
  6. SORAFENIB [Suspect]
     Indication: HEPATIC NEOPLASM MALIGNANT
     Dosage: with bi-weekly LFP therapy
     Route: 065

REACTIONS (1)
  - Hepatic artery thrombosis [Recovering/Resolving]
